FAERS Safety Report 8257079-9 (Version None)
Quarter: 2012Q2

REPORT INFORMATION
  Report Type: 
  Country: None (occurrence: None)
  Receive Date: 20120403
  Receipt Date: 20120316
  Transmission Date: 20120825
  Serious: Yes (Hospitalization)
  Sender: FDA-Public Use
  Company Number: DE-GLAXOSMITHKLINE-D0074906A

PATIENT
  Sex: Female

DRUGS (3)
  1. POTIGA [Suspect]
     Indication: EPILEPSY
     Route: 048
     Dates: start: 20111201, end: 20120221
  2. LAMOTRGINE [Concomitant]
     Indication: EPILEPSY
     Dosage: 400MG PER DAY
     Route: 048
  3. FRISIUM [Concomitant]
     Indication: EPILEPSY
     Dosage: 15MG PER DAY
     Route: 048

REACTIONS (2)
  - APHASIA [None]
  - DYSARTHRIA [None]
